FAERS Safety Report 6366688-3 (Version None)
Quarter: 2009Q3

REPORT INFORMATION
  Report Type: 
  Country: None (occurrence: None)
  Receive Date: 20090915
  Receipt Date: 20090903
  Transmission Date: 20100115
  Serious: Yes (Death, Disabling, Other)
  Sender: FDA-Public Use
  Company Number: 2007-03558

PATIENT
  Age: 77 Year
  Sex: Female
  Weight: 40 kg

DRUGS (18)
  1. VELCADE [Suspect]
     Indication: MULTIPLE MYELOMA
     Dosage: 1.70 MG, INTRAVENOUS
     Route: 042
     Dates: start: 20070914, end: 20070925
  2. DEXAMETHASONE [Concomitant]
  3. ZOMETA [Concomitant]
  4. GLUCOSE (GLUCOSE) [Concomitant]
  5. SODIUM BICARBONATE [Concomitant]
  6. VITACIMIN [Concomitant]
  7. VITAMEDIN INTRAVENOUS (PYRIDOXINE HYDROCHLORIDE, THIAMINE DISULFIDE, C [Concomitant]
  8. SOLITA T (ELECTROLYTES NOS) [Concomitant]
  9. PANTOL (DEXPANTHENOL) [Concomitant]
  10. PRIMPERAN TAB [Concomitant]
  11. CARMOFUR (CARMOFUR) [Concomitant]
  12. DIFLUCAN [Concomitant]
  13. OMEPRAZOLE [Concomitant]
  14. ALLOPURINOL [Concomitant]
  15. MAG-LAX (MAGNESIUM HYDROXIDE, PARAFFIN, LIQUID) [Concomitant]
  16. LASIX [Concomitant]
  17. RED BLOOD CELLS [Concomitant]
  18. PLATELETS [Concomitant]

REACTIONS (19)
  - ALANINE AMINOTRANSFERASE INCREASED [None]
  - ASPARTATE AMINOTRANSFERASE INCREASED [None]
  - BEDRIDDEN [None]
  - BLOOD LACTATE DEHYDROGENASE INCREASED [None]
  - COORDINATION ABNORMAL [None]
  - DISEASE PROGRESSION [None]
  - EATING DISORDER [None]
  - HAEMOGLOBIN DECREASED [None]
  - ILEUS PARALYTIC [None]
  - INNER EAR DISORDER [None]
  - LYMPHOCYTE COUNT DECREASED [None]
  - NEUROPATHY PERIPHERAL [None]
  - OEDEMA PERIPHERAL [None]
  - ORAL HERPES [None]
  - ORTHOSTATIC HYPOTENSION [None]
  - PLATELET COUNT DECREASED [None]
  - POLYNEUROPATHY [None]
  - SKIN EXFOLIATION [None]
  - STOMATITIS [None]
